FAERS Safety Report 4801534-8 (Version None)
Quarter: 2005Q4

REPORT INFORMATION
  Report Type: 
  Country: None (occurrence: None)
  Receive Date: 20051018
  Receipt Date: 20041104
  Transmission Date: 20060501
  Serious: Yes (Death, Life-Threatening, Hospitalization)
  Sender: FDA-Public Use
  Company Number: GBWYE176704NOV04

PATIENT
  Sex: Female

DRUGS (7)
  1. ENBREL [Suspect]
     Indication: RHEUMATOID ARTHRITIS
     Route: 058
     Dates: start: 20030828
  2. THYROXINE SODIUM [Concomitant]
     Route: 065
  3. RAMIPRIL [Concomitant]
     Route: 065
  4. BISOPROLOL FUMARATE [Concomitant]
     Route: 065
  5. ZOTON [Concomitant]
     Route: 065
  6. PARACETAMOL [Concomitant]
     Route: 065
  7. CODEINE [Concomitant]
     Route: 065

REACTIONS (3)
  - NAUSEA [None]
  - OVARIAN CANCER [None]
  - VOMITING [None]
